FAERS Safety Report 4722086-7 (Version None)
Quarter: 2005Q3

REPORT INFORMATION
  Report Type: 
  Country: None (occurrence: None)
  Receive Date: 20050722
  Receipt Date: 20050711
  Transmission Date: 20060218
  Serious: Yes (Hospitalization)
  Sender: FDA-Public Use
  Company Number: FR-NOVOPROD-245438

PATIENT
  Age: 84 Year
  Sex: Female

DRUGS (1)
  1. NOVONORM [Suspect]
     Indication: DIABETES MELLITUS
     Dosage: 3 TABLETS PER DAY
     Dates: end: 20050619

REACTIONS (2)
  - DEPRESSED LEVEL OF CONSCIOUSNESS [None]
  - HYPOGLYCAEMIA [None]
